FAERS Safety Report 5921804-X (Version None)
Quarter: 2008Q4

REPORT INFORMATION
  Report Type: 
  Country: None (occurrence: None)
  Receive Date: 20081017
  Receipt Date: 20081009
  Transmission Date: 20090506
  Serious: Yes (Death, Hospitalization)
  Sender: FDA-Public Use
  Company Number: PL-AMGEN-UK311473

PATIENT
  Sex: Female
  Weight: 66 kg

DRUGS (5)
  1. NEULASTA [Suspect]
     Indication: CHEMOTHERAPY
     Route: 058
     Dates: start: 20080924, end: 20080924
  2. DOXORUBICIN HYDROCHLORIDE [Concomitant]
     Dates: start: 20080923
  3. PACLITAXEL [Concomitant]
     Dates: start: 20080923
  4. ONDANSETRON [Concomitant]
     Route: 048
     Dates: start: 20080924, end: 20080928
  5. NEUPOGEN [Concomitant]
     Route: 065
     Dates: start: 20080930

REACTIONS (4)
  - ABDOMINAL PAIN [None]
  - FEBRILE NEUTROPENIA [None]
  - SEPTIC SHOCK [None]
  - THERAPEUTIC RESPONSE DECREASED [None]
